FAERS Safety Report 19107152 (Version 4)
Quarter: 2021Q4

REPORT INFORMATION
  Report Type: Spontaneous
  Country: HK (occurrence: HK)
  Receive Date: 20210408
  Receipt Date: 20211231
  Transmission Date: 20220303
  Serious: Yes (Death)
  Sender: FDA-Public Use
  Company Number: HK-BAYER-2021-118642

PATIENT
  Age: 83 Year
  Sex: Male

DRUGS (1)
  1. RIVAROXABAN [Suspect]
     Active Substance: RIVAROXABAN
     Indication: Product used for unknown indication
     Dosage: 15 MG, QD
     Route: 048
     Dates: start: 2016, end: 20201223

REACTIONS (3)
  - Pneumonia [Fatal]
  - Pyrexia [Fatal]
  - Cough [Fatal]

NARRATIVE: CASE EVENT DATE: 20201223
